FAERS Safety Report 17692272 (Version 10)
Quarter: 2021Q4

REPORT INFORMATION
  Report Type: Spontaneous
  Country: US (occurrence: US)
  Receive Date: 20200422
  Receipt Date: 20211011
  Transmission Date: 20220303
  Serious: Yes (Hospitalization, Other)
  Sender: FDA-Public Use
  Company Number: US-PFIZER INC-2020156785

PATIENT
  Age: 77 Year
  Sex: Female
  Weight: 127.01 kg

DRUGS (7)
  1. IBRANCE [Suspect]
     Active Substance: PALBOCICLIB
     Indication: Breast cancer metastatic
     Dosage: 125 MG, CYCLIC (ONCE DAILY IN THE MORNING FOR 3 WEEKS ON, THEN 1 WEEK OFF)
     Dates: start: 2019
  2. LASIX [Concomitant]
     Active Substance: FUROSEMIDE
     Dosage: 40 MG, DAILY
  3. LASIX [Concomitant]
     Active Substance: FUROSEMIDE
     Dosage: UNK, EVERY 4 HRS (LIQUID LASIX VIA PORT EVERY 4 HOURS DURING THE DAY)
  4. ARIMIDEX [Concomitant]
     Active Substance: ANASTROZOLE
     Indication: Breast cancer metastatic
     Dosage: 1 MG, DAILY
     Dates: start: 2020
  5. WARFARIN [Concomitant]
     Active Substance: WARFARIN
     Dosage: UNK
     Dates: start: 2016
  6. DILTIAZEM [Concomitant]
     Active Substance: DILTIAZEM
     Dosage: UNK, 1X/DAY
     Dates: start: 2019
  7. TRIAMTERENE [Concomitant]
     Active Substance: TRIAMTERENE
     Dosage: UNK, 1X/DAY
     Dates: start: 2006

REACTIONS (15)
  - Cardiac failure [Unknown]
  - Pulmonary oedema [Unknown]
  - Fluid retention [Not Recovered/Not Resolved]
  - Hypokinesia [Not Recovered/Not Resolved]
  - Peripheral swelling [Unknown]
  - Flatulence [Not Recovered/Not Resolved]
  - Anxiety [Unknown]
  - Weight increased [Unknown]
  - Therapeutic response unexpected [Unknown]
  - Pre-existing condition improved [Unknown]
  - Nasal congestion [Unknown]
  - Fatigue [Unknown]
  - Product dose omission issue [Unknown]
  - Asthenia [Unknown]
  - Limb discomfort [Unknown]

NARRATIVE: CASE EVENT DATE: 20200101
